FAERS Safety Report 17870456 (Version 10)
Quarter: 2020Q3

REPORT INFORMATION
  Report Type: Spontaneous
  Country: US (occurrence: US)
  Receive Date: 20200608
  Receipt Date: 20200723
  Transmission Date: 20201103
  Serious: No
  Sender: FDA-Public Use
  Company Number: US-PFIZER INC-2020217375

PATIENT
  Age: 44 Year
  Sex: Female

DRUGS (2)
  1. IBRANCE [Suspect]
     Active Substance: PALBOCICLIB
     Indication: BREAST CANCER METASTATIC
     Dosage: 100 MG, ONCE DAILY ONCE DAILY FOR 7 DAYS, THEN 1 WEEK OFF (QUANTITY: 90, DAYS SUPPLY: 90)
     Route: 048
  2. IBRANCE [Suspect]
     Active Substance: PALBOCICLIB
     Dosage: 100 MG, CYCLIC (DAILY FOR 7 DAYS, THEN 1 WEEK OFF/QUANTITY: 21)

REACTIONS (4)
  - Platelet count decreased [Unknown]
  - Somnolence [Unknown]
  - White blood cell count decreased [Unknown]
  - Product dose omission issue [Unknown]
